FAERS Safety Report 16268142 (Version 1)
Quarter: 2019Q2

REPORT INFORMATION
  Report Type: Spontaneous
  Country: US (occurrence: US)
  Receive Date: 20190503
  Receipt Date: 20190503
  Transmission Date: 20190711
  Serious: Yes (Hospitalization, Other)
  Sender: FDA-Public Use
  Company Number: US-EMCURE PHARMACEUTICALS LTD-2019-EPL-0196

PATIENT
  Age: 62 Year
  Sex: Male

DRUGS (4)
  1. CEFEPIME [Suspect]
     Active Substance: CEFEPIME HYDROCHLORIDE
     Indication: SEPSIS
     Dosage: 2 GRAM, BID
     Route: 042
  2. VANCOMYCIN HYDROCHLORIDE. [Suspect]
     Active Substance: VANCOMYCIN HYDROCHLORIDE
     Indication: SEPSIS
     Dosage: 1.25 GRAM
     Route: 042
  3. VANCOMYCIN HYDROCHLORIDE. [Suspect]
     Active Substance: VANCOMYCIN HYDROCHLORIDE
     Dosage: 1.5 GRAM, BID
     Route: 042
  4. CEFTRIAXONE. [Suspect]
     Active Substance: CEFTRIAXONE
     Indication: SEPSIS
     Dosage: 2 GRAM
     Route: 042

REACTIONS (1)
  - Pancytopenia [Recovered/Resolved]
